FAERS Safety Report 18527564 (Version 4)
Quarter: 2020Q4

REPORT INFORMATION
  Report Type: Spontaneous
  Country: IT (occurrence: IT)
  Receive Date: 20201120
  Receipt Date: 20201126
  Transmission Date: 20210114
  Serious: Yes (Death, Life-Threatening, Hospitalization, Other)
  Sender: FDA-Public Use
  Company Number: IT-PFIZER INC-2020452000

PATIENT
  Age: 32 Year
  Sex: Female
  Weight: 76 kg

DRUGS (5)
  1. CMV-HYPERIMMUNE-GLOBULIN [Concomitant]
     Indication: ANTIVIRAL PROPHYLAXIS
     Dosage: UNK
     Route: 042
  2. MYCOPHENOLATE MOFETIL. [Suspect]
     Active Substance: MYCOPHENOLATE MOFETIL
     Indication: IMMUNOSUPPRESSANT DRUG THERAPY
     Dosage: 2 G, 1X/DAY
  3. METHYLPREDNISOLONE SODIUM SUCCINATE. [Suspect]
     Active Substance: METHYLPREDNISOLONE SODIUM SUCCINATE
     Indication: IMMUNOSUPPRESSANT DRUG THERAPY
     Dosage: 0.5 MG/KG, 1X/DAY
     Route: 042
  4. CICLOSPORIN [Suspect]
     Active Substance: CYCLOSPORINE
     Indication: IMMUNOSUPPRESSANT DRUG THERAPY
     Dosage: 1 MG/KG, 1X/DAY (PLASMATIC CYCLOSPORINE CONCENTRATION TARGET OF 200NG/ML)
     Route: 042
  5. CMV-HYPERIMMUNE-GLOBULIN [Concomitant]
     Dosage: 75 IU/KG, CYCLIC (ONCE EVERY FOUR DAYS)
     Route: 042

REACTIONS (8)
  - Septic shock [Fatal]
  - Acute respiratory failure [Recovering/Resolving]
  - Klebsiella infection [Fatal]
  - Large intestine perforation [Recovering/Resolving]
  - Peritonitis [Recovering/Resolving]
  - Bronchial anastomosis complication [Fatal]
  - Colitis [Recovering/Resolving]
  - Cytomegalovirus infection [Recovering/Resolving]
